FAERS Safety Report 8817384 (Version 2)
Quarter: 2013Q1

REPORT INFORMATION
  Report Type: Spontaneous
  Country: US (occurrence: US)
  Receive Date: 20121004
  Receipt Date: 20130131
  Transmission Date: 20140127
  Serious: Yes (Other)
  Sender: FDA-Public Use
  Company Number: US-009507513-1210USA000198

PATIENT
  Sex: Male
  Weight: 76.19 kg

DRUGS (3)
  1. ZOCOR [Suspect]
     Indication: BLOOD CHOLESTEROL INCREASED
     Dosage: 20 MG, QD
     Route: 048
     Dates: start: 201108, end: 20120705
  2. MINOCYCLINE [Concomitant]
  3. COUMADIN [Concomitant]

REACTIONS (3)
  - Gastritis [Not Recovered/Not Resolved]
  - Surgery [Not Recovered/Not Resolved]
  - Neuropathy peripheral [Not Recovered/Not Resolved]
